FAERS Safety Report 9848963 (Version 6)
Quarter: 2015Q3

REPORT INFORMATION
  Report Type: Spontaneous
  Country: US (occurrence: US)
  Receive Date: 20140128
  Receipt Date: 20150714
  Transmission Date: 20151125
  Serious: Yes (Hospitalization, Disabling, Other)
  Sender: FDA-Public Use
  Company Number: US-009507513-1401USA008418

PATIENT
  Sex: Female

DRUGS (7)
  1. FOSAMAX PLUS D [Suspect]
     Active Substance: ALENDRONATE SODIUM\CHOLECALCIFEROL
     Indication: OSTEOPOROSIS PROPHYLAXIS
     Dosage: 70 MG, WEEKLY
     Route: 048
     Dates: start: 20051216, end: 2009
  2. HORMONES (UNSPECIFIED) [Concomitant]
     Active Substance: UNSPECIFIED INGREDIENT
     Dosage: UNK
     Dates: start: 2004, end: 2009
  3. CENTRUM SILVER ULTRA WOMENS [Concomitant]
     Dosage: UNK
     Dates: start: 2005
  4. CORTICOSTEROIDS (UNSPECIFIED) [Concomitant]
     Active Substance: UNSPECIFIED INGREDIENT
     Dosage: UNK
     Dates: start: 2000, end: 20140224
  5. OMEGA-3 MARINE TRIGLYCERIDES [Concomitant]
     Active Substance: FISH OIL
     Dosage: 500 MG, DAILY
     Dates: start: 1980
  6. FOSAMAX [Suspect]
     Active Substance: ALENDRONATE SODIUM
     Indication: PRODUCT USED FOR UNKNOWN INDICATION
     Dosage: 70 MG, QW
     Route: 048
     Dates: start: 201007
  7. SELECTIVE ESTROGEN RECEPTOR MODULATOR (UNSPECIFIED) [Concomitant]
     Dosage: UNK
     Dates: start: 2004, end: 2009

REACTIONS (25)
  - Back disorder [Not Recovered/Not Resolved]
  - Blood cholesterol increased [Unknown]
  - Nephropathy [Unknown]
  - Intervertebral disc protrusion [Unknown]
  - Intramedullary rod insertion [Unknown]
  - Increased tendency to bruise [Unknown]
  - Neuralgia [Unknown]
  - Asthma [Unknown]
  - Intramedullary rod insertion [Unknown]
  - Renal failure [Unknown]
  - Back pain [Not Recovered/Not Resolved]
  - Femur fracture [Unknown]
  - Sedation [Unknown]
  - Respiratory failure [Unknown]
  - Radiation necrosis [Unknown]
  - Hypertension [Unknown]
  - Pneumonia [Unknown]
  - Post procedural infection [Unknown]
  - Tachycardia [Unknown]
  - Anaemia postoperative [Unknown]
  - Oedema peripheral [Unknown]
  - Renal transplant [Unknown]
  - White blood cell count increased [Recovered/Resolved]
  - Urinary tract infection [Unknown]
  - Arthralgia [Not Recovered/Not Resolved]

NARRATIVE: CASE EVENT DATE: 2006
